FAERS Safety Report 10578398 (Version 1)
Quarter: 2014Q4

REPORT INFORMATION
  Report Type: Spontaneous
  Country: US (occurrence: US)
  Receive Date: 20141112
  Receipt Date: 20141112
  Transmission Date: 20150529
  Serious: Yes (Hospitalization, Other)
  Sender: FDA-Public Use
  Company Number: US-RANBAXY-2014US-87813

PATIENT
  Age: 18 Year
  Sex: Female

DRUGS (1)
  1. LISINOPRIL. [Suspect]
     Active Substance: LISINOPRIL
     Indication: RENOVASCULAR HYPERTENSION
     Dosage: UNK
     Route: 065

REACTIONS (3)
  - Premature labour [Recovered/Resolved]
  - Exposure during pregnancy [Recovered/Resolved]
  - Caesarean section [Recovered/Resolved]
